FAERS Safety Report 20514447 (Version 1)
Quarter: 2022Q1

REPORT INFORMATION
  Report Type: Spontaneous
  Country: BE (occurrence: BE)
  Receive Date: 20220224
  Receipt Date: 20220224
  Transmission Date: 20220424
  Serious: Yes (Other)
  Sender: FDA-Public Use
  Company Number: BE-009507513-2202BEL005123

PATIENT
  Sex: Male

DRUGS (3)
  1. TEMODAL [Suspect]
     Active Substance: TEMOZOLOMIDE
     Indication: Glioma
     Dosage: RADIOTHERAPY + TEMODAL
     Route: 048
     Dates: start: 202104, end: 202105
  2. TEMODAL [Suspect]
     Active Substance: TEMOZOLOMIDE
     Dosage: TEMODAL MONOTHERAPY
     Route: 048
     Dates: start: 202106, end: 202111
  3. TEMODAL [Suspect]
     Active Substance: TEMOZOLOMIDE
     Dosage: RESTART TEMODAL 300MG
     Route: 048
     Dates: start: 202202

REACTIONS (1)
  - Malignant neoplasm progression [Unknown]

NARRATIVE: CASE EVENT DATE: 20220201
